FAERS Safety Report 11387820 (Version 1)
Quarter: 2015Q3

REPORT INFORMATION
  Report Type: Spontaneous
  Country: US (occurrence: US)
  Receive Date: 20150817
  Receipt Date: 20150817
  Transmission Date: 20151125
  Serious: No
  Sender: FDA-Public Use
  Company Number: GXBR2015US000965

PATIENT
  Age: 34 Year
  Sex: Female

DRUGS (11)
  1. ENDOMETRIN [Concomitant]
     Active Substance: PROGESTERONE
     Dosage: 100 MG, UNK
  2. DOXYCYCLINE. [Concomitant]
     Active Substance: DOXYCYCLINE
     Dosage: 100 MG, UNK
     Route: 048
  3. HCG [Concomitant]
     Active Substance: GONADOTROPHIN, CHORIONIC
     Dosage: LOW DOSE 10/.15 DF, UNK
  4. LEUPROLIDE ACETATE. [Suspect]
     Active Substance: LEUPROLIDE ACETATE
     Indication: OVULATION INDUCTION
     Dosage: 40 U, Q12H
     Route: 058
     Dates: start: 20150303, end: 20150304
  5. NOVAREL [Concomitant]
     Active Substance: CHORIOGONADOTROPIN ALFA
     Dosage: 10000 IU, UNK
  6. FOLLISTIM [Concomitant]
     Active Substance: FOLLITROPIN
     Dosage: 900 IU, UNK
  7. ESTRADIOL. [Concomitant]
     Active Substance: ESTRADIOL
     Dosage: 2 MG, UNK
  8. PROGESTERONE. [Concomitant]
     Active Substance: PROGESTERONE
     Dosage: 50 MG/ML, UNK
  9. GANIRELIX [Concomitant]
     Active Substance: GANIRELIX
     Dosage: 250 MG, UNK
  10. METRONIDAZOLE. [Concomitant]
     Active Substance: METRONIDAZOLE
     Dosage: 0.75 UNK, UNK
     Route: 067
  11. METHYLPREDNISOLONE. [Concomitant]
     Active Substance: METHYLPREDNISOLONE
     Dosage: 16 MG, UNK
     Route: 048

REACTIONS (4)
  - Off label use [Unknown]
  - Oestradiol increased [Unknown]
  - Blood follicle stimulating hormone abnormal [Unknown]
  - Drug ineffective [Unknown]

NARRATIVE: CASE EVENT DATE: 20150303
